FAERS Safety Report 20062659 (Version 1)
Quarter: 2021Q4

REPORT INFORMATION
  Report Type: Spontaneous
  Country: CN (occurrence: None)
  Receive Date: 20211112
  Receipt Date: 20211112
  Transmission Date: 20220303
  Serious: Yes (Other)
  Sender: FDA-Public Use
  Company Number: CN-Eisai Medical Research-EC-2021-102862

PATIENT
  Age: 48 Year
  Sex: Female
  Weight: 63 kg

DRUGS (4)
  1. RABEPRAZOLE SODIUM [Suspect]
     Active Substance: RABEPRAZOLE SODIUM
     Indication: Helicobacter infection
     Route: 048
     Dates: start: 20211027, end: 20211029
  2. FURAZOLIDONE [Suspect]
     Active Substance: FURAZOLIDONE
     Indication: Helicobacter infection
     Route: 048
     Dates: start: 20211027, end: 20211029
  3. LEVOFLOXACIN [Suspect]
     Active Substance: LEVOFLOXACIN
     Indication: Helicobacter infection
     Route: 048
     Dates: start: 20211027, end: 20211029
  4. BISMUTH SUBCITRATE [Suspect]
     Active Substance: BISMUTH SUBCITRATE
     Indication: Helicobacter infection
     Route: 048
     Dates: start: 20211027, end: 20211029

REACTIONS (1)
  - Urticaria [Recovering/Resolving]

NARRATIVE: CASE EVENT DATE: 20211027
